FAERS Safety Report 4558188-8 (Version None)
Quarter: 2005Q1

REPORT INFORMATION
  Report Type: 
  Country: None (occurrence: None)
  Receive Date: 20050103
  Receipt Date: 20040928
  Transmission Date: 20050727
  Serious: Yes (Other)
  Sender: FDA-Public Use
  Company Number: 2004UW20401

PATIENT
  Age: 82 Year
  Sex: Female
  Weight: 61.2356 kg

DRUGS (3)
  1. CRESTOR [Suspect]
     Indication: BLOOD CHOLESTEROL INCREASED
     Dosage: 10 MG QD PO
     Route: 048
     Dates: start: 20040824
  2. ATENOLOL [Concomitant]
  3. SULFAMETHOXAZOLE [Concomitant]

REACTIONS (5)
  - CARPAL TUNNEL SYNDROME [None]
  - CONSTIPATION [None]
  - HEADACHE [None]
  - PARAESTHESIA [None]
  - STOMACH DISCOMFORT [None]
